FAERS Safety Report 13964444 (Version 1)
Quarter: 2017Q3

REPORT INFORMATION
  Report Type: Spontaneous
  Country: US (occurrence: US)
  Receive Date: 20170913
  Receipt Date: 20170913
  Transmission Date: 20171128
  Serious: Yes (Hospitalization, Other)
  Sender: FDA-Public Use
  Company Number: US-PFIZER INC-2017391123

PATIENT
  Age: 62 Year
  Sex: Female
  Weight: 54.43 kg

DRUGS (4)
  1. DILANTIN [Suspect]
     Active Substance: PHENYTOIN
     Dosage: 100 MG, 3X/DAY (WITH BREAKFAST, LUNCH, AND DINNER)
  2. METHOTREXATE SODIUM. [Suspect]
     Active Substance: METHOTREXATE SODIUM
     Indication: CHEMOTHERAPY
  3. DILANTIN [Suspect]
     Active Substance: PHENYTOIN
     Indication: SEIZURE
     Dosage: 500 MG, DAILY (100 MG CAPSULES IN THE MORNING AND TWO 100 MG CAPSULES AT NIGHT)
     Route: 048
  4. METHOTREXATE SODIUM. [Suspect]
     Active Substance: METHOTREXATE SODIUM
     Indication: RHEUMATOID ARTHRITIS

REACTIONS (8)
  - Blindness [Recovered/Resolved]
  - Malaise [Recovered/Resolved]
  - Sinusitis [Recovering/Resolving]
  - Speech disorder [Recovered/Resolved]
  - Pneumonia [Recovering/Resolving]
  - Cough [Unknown]
  - Anticonvulsant drug level increased [Unknown]
  - Muscle disorder [Recovered/Resolved]

NARRATIVE: CASE EVENT DATE: 201708
